FAERS Safety Report 6891704-X (Version None)
Quarter: 2010Q3

REPORT INFORMATION
  Report Type: 
  Country: None (occurrence: None)
  Receive Date: 20100731
  Receipt Date: 20070920
  Transmission Date: 20110219
  Serious: No
  Sender: FDA-Public Use
  Company Number: US-PFIZER INC-2007065054

PATIENT
  Sex: Female
  Weight: 43.1 kg

DRUGS (9)
  1. NEURONTIN [Suspect]
     Indication: PAIN
     Dates: end: 20070109
  2. NEURONTIN [Suspect]
     Indication: BURNING SENSATION
  3. LYRICA [Suspect]
     Indication: PAIN
     Route: 048
     Dates: start: 20051027, end: 20070716
  4. LYRICA [Suspect]
     Indication: CERVICOBRACHIAL SYNDROME
  5. LYRICA [Suspect]
     Indication: FIBROMYALGIA
  6. LYRICA [Suspect]
     Indication: LUMBAR RADICULOPATHY
  7. DARVOCET [Concomitant]
  8. SOMA [Concomitant]
  9. SYNTHROID [Concomitant]
     Indication: HYPOTHYROIDISM

REACTIONS (4)
  - ALOPECIA [None]
  - NEURALGIA [None]
  - PAIN [None]
  - WEIGHT INCREASED [None]
